FAERS Safety Report 10194071 (Version 1)
Quarter: 2014Q2

REPORT INFORMATION
  Report Type: Spontaneous
  Country: US (occurrence: US)
  Receive Date: 20140524
  Receipt Date: 20140524
  Transmission Date: 20141212
  Serious: No
  Sender: FDA-Public Use
  Company Number: US-SANOFI-AVENTIS-2013SA065453

PATIENT
  Age: 84 Year
  Sex: Male

DRUGS (3)
  1. LANTUS SOLOSTAR [Suspect]
     Dosage: PRODUCT START DATE - 2  WEEKS AGO DOSE:10 UNIT(S)
     Route: 051
  2. SOLOSTAR [Suspect]
     Dosage: DOSE:10 UNIT(S)
  3. GLYBURIDE [Suspect]

REACTIONS (5)
  - Confusional state [Unknown]
  - Dizziness [Unknown]
  - Fall [Unknown]
  - Incorrect product storage [Unknown]
  - Drug administration error [Unknown]
